FAERS Safety Report 9519547 (Version 1)
Quarter: 2013Q3

REPORT INFORMATION
  Report Type: Report from Study
  Country: US (occurrence: US)
  Receive Date: 20130912
  Receipt Date: 20130912
  Transmission Date: 20140515
  Serious: Yes (Other)
  Sender: FDA-Public Use
  Company Number: US-JNJFOC-20130906410

PATIENT
  Age: 61 Year
  Sex: Female
  Weight: 106.6 kg

DRUGS (4)
  1. REMICADE [Suspect]
     Indication: PSORIATIC ARTHROPATHY
     Dosage: HAD 5 DOSES
     Route: 042
     Dates: end: 200807
  2. REMICADE [Suspect]
     Indication: PSORIATIC ARTHROPATHY
     Dosage: HAD 5 DOSES
     Route: 042
     Dates: end: 200805
  3. MOBIC [Concomitant]
     Indication: ARTHRITIS
     Route: 048
  4. MORPHINE [Concomitant]
     Indication: PAIN
     Route: 048

REACTIONS (1)
  - Lupus-like syndrome [Recovered/Resolved]
